FAERS Safety Report 11169641 (Version 1)
Quarter: 2015Q2

REPORT INFORMATION
  Report Type: Spontaneous
  Country: US (occurrence: US)
  Receive Date: 20150605
  Receipt Date: 20150605
  Transmission Date: 20150821
  Serious: Yes (Hospitalization)
  Sender: FDA-Public Use
  Company Number: US-ASTRAZENECA-2005BM00936

PATIENT
  Age: 17528 Day
  Sex: Female
  Weight: 106.6 kg

DRUGS (18)
  1. BYETTA [Suspect]
     Active Substance: EXENATIDE
     Indication: TYPE 2 DIABETES MELLITUS
     Route: 058
     Dates: start: 20050803
  2. AMARYL [Concomitant]
     Active Substance: GLIMEPIRIDE
     Indication: TYPE 2 DIABETES MELLITUS
     Dosage: 2 MG, QD
     Route: 048
     Dates: start: 2003
  3. METFORMIN [Concomitant]
     Active Substance: METFORMIN HYDROCHLORIDE
     Indication: TYPE 2 DIABETES MELLITUS
     Dosage: 750 MG, QD
     Route: 048
     Dates: start: 1998
  4. LISINOPRIL. [Concomitant]
     Active Substance: LISINOPRIL
     Indication: BLOOD PRESSURE
     Dosage: 5 MG, QD
     Route: 048
     Dates: start: 2000
  5. MAYCOR NITROSPRAY [Concomitant]
     Dosage: UNK UNK, PRN
     Dates: start: 1999
  6. ALLEGRA [Concomitant]
     Active Substance: FEXOFENADINE HYDROCHLORIDE
     Indication: HYPERSENSITIVITY
     Dosage: UNK UNK, PRN
  7. SALICYLATE [Concomitant]
     Active Substance: SALICYLIC ACID
     Indication: ARTHRITIS
     Dosage: 750 MG, TID
     Route: 048
     Dates: start: 2002
  8. HYOSCYAMINE [Concomitant]
     Active Substance: HYOSCYAMINE
     Indication: OESOPHAGEAL SPASM
     Dosage: .125 MG, QD
     Route: 048
  9. CYMBALTA [Concomitant]
     Active Substance: DULOXETINE HYDROCHLORIDE
     Indication: DEPRESSION
     Dosage: 60 MG, QD
     Route: 048
  10. ATENOLOL. [Concomitant]
     Active Substance: ATENOLOL
     Indication: BLOOD PRESSURE ABNORMAL
     Dosage: 25 MG, QD
     Route: 048
     Dates: start: 2000
  11. ZETIA [Concomitant]
     Active Substance: EZETIMIBE
     Indication: BLOOD CHOLESTEROL
     Dosage: 10 MG, QD
     Route: 048
  12. BYETTA [Suspect]
     Active Substance: EXENATIDE
     Indication: TYPE 2 DIABETES MELLITUS
     Route: 058
     Dates: start: 20050613, end: 20050803
  13. BRILINTA [Suspect]
     Active Substance: TICAGRELOR
     Indication: ACUTE CORONARY SYNDROME
     Route: 048
  14. PRAVACHOL [Concomitant]
     Active Substance: PRAVASTATIN SODIUM
     Indication: BLOOD CHOLESTEROL
     Dosage: 40 MG, QD
     Route: 048
     Dates: start: 2000
  15. THYROXINE ^APS^ [Concomitant]
     Indication: HYPOTHYROIDISM
     Dosage: .125 ?G, QD
     Route: 048
     Dates: start: 1994
  16. LAMICTAL ^BURROUGHS WELLCOME^ [Concomitant]
     Indication: BIPOLAR DISORDER
     Dosage: 125 MG, BID
     Route: 048
     Dates: start: 2003
  17. SKELAXIN [Concomitant]
     Active Substance: METAXALONE
     Indication: FIBROMYALGIA
     Dosage: UNK UNK, QID
     Route: 048
     Dates: start: 2002
  18. PLAVIX [Concomitant]
     Active Substance: CLOPIDOGREL BISULFATE
     Dosage: 75 MG, QD
     Route: 048
     Dates: start: 2000

REACTIONS (11)
  - Injection site vesicles [Not Recovered/Not Resolved]
  - Decreased appetite [Recovered/Resolved]
  - Dyspnoea [Unknown]
  - Chest pain [Unknown]
  - Injection site bruising [Recovered/Resolved]
  - Early satiety [Recovered/Resolved]
  - Pituitary-dependent Cushing^s syndrome [Unknown]
  - Injection site erythema [Not Recovered/Not Resolved]
  - Memory impairment [Unknown]
  - Injection site haemorrhage [Not Recovered/Not Resolved]
  - Chest discomfort [Unknown]

NARRATIVE: CASE EVENT DATE: 20050803
